FAERS Safety Report 9607863 (Version 1)
Quarter: 2013Q4

REPORT INFORMATION
  Report Type: Spontaneous
  Country: GB (occurrence: GB)
  Receive Date: 20131009
  Receipt Date: 20131009
  Transmission Date: 20140711
  Serious: Yes (Hospitalization, Other)
  Sender: FDA-Public Use
  Company Number: GB-ASTRAZENECA-2013SE72899

PATIENT
  Age: 60 Year
  Sex: Male
  Weight: 102.1 kg

DRUGS (19)
  1. TICAGRELOR [Suspect]
     Indication: ACUTE MYOCARDIAL INFARCTION
     Route: 048
     Dates: start: 20130417, end: 20130725
  2. ASPIRIN [Concomitant]
  3. ATORVASTATIN [Concomitant]
  4. BUMETANIDE [Concomitant]
  5. DALTEPARIN SODIUM [Concomitant]
  6. ESOMEPRAZOLE [Concomitant]
  7. FINASTERIDE [Concomitant]
  8. HYDROCORTISON [Concomitant]
  9. IPRATROPIUM BROMIDE [Concomitant]
  10. IVABRADINE [Concomitant]
  11. LEVOTHYROXINE SODIUM [Concomitant]
  12. PARACETAMOL [Concomitant]
  13. RAMIPRIL [Concomitant]
  14. SALBUTAMOL [Concomitant]
  15. SERETIDE [Concomitant]
  16. TIOTROPIUM BROMID [Concomitant]
  17. TRANSTEC [Concomitant]
  18. UNIPHYLLIN CONTINUS [Concomitant]
  19. VENLAFAXINE [Concomitant]

REACTIONS (5)
  - Cognitive disorder [Unknown]
  - Contusion [Recovering/Resolving]
  - Disorientation [Unknown]
  - Injection site haemorrhage [Recovering/Resolving]
  - Cerebral haemorrhage [Unknown]
